FAERS Safety Report 5534143-6 (Version None)
Quarter: 2007Q4

REPORT INFORMATION
  Report Type: 
  Country: None (occurrence: None)
  Receive Date: 20071205
  Receipt Date: 20071126
  Transmission Date: 20080405
  Serious: Yes (Hospitalization)
  Sender: FDA-Public Use
  Company Number: TR-BRISTOL-MYERS SQUIBB COMPANY-13993365

PATIENT
  Age: 27 Year
  Sex: Male

DRUGS (3)
  1. CISPLATIN [Suspect]
     Indication: SEMINOMA
     Dosage: FIRST 5 DAYS OF EACH 21 DAY COURSE
  2. ETOPOSIDE [Suspect]
     Indication: SEMINOMA
     Dosage: FIRST 5 DAYS OF EACH 21 DAY COURSE
     Route: 042
  3. BLEOMYCIN SULFATE [Suspect]
     Indication: SEMINOMA
     Dosage: ON DAY 1, 8 + 15.
     Route: 042

REACTIONS (1)
  - MYOCARDIAL INFARCTION [None]
